FAERS Safety Report 9312605 (Version 3)
Quarter: 2013Q2

REPORT INFORMATION
  Report Type: Report from Study
  Country: NL (occurrence: NL)
  Receive Date: 20130528
  Receipt Date: 20130614
  Transmission Date: 20140414
  Serious: Yes (Hospitalization)
  Sender: FDA-Public Use
  Company Number: NL-GLAXOSMITHKLINE-B0874295B

PATIENT
  Age: 48 Year
  Sex: 0

DRUGS (3)
  1. PAZOPANIB [Suspect]
     Indication: NEOPLASM
     Dosage: 400MG PER DAY
     Route: 048
     Dates: start: 20130110
  2. PACLITAXEL [Suspect]
     Indication: NEOPLASM
     Dosage: 200MG WEEKLY
     Route: 042
     Dates: start: 20130102
  3. CARBOPLATIN [Suspect]
     Indication: NEOPLASM
     Dosage: 200MG WEEKLY
     Route: 042
     Dates: start: 20130102

REACTIONS (3)
  - Pyrexia [Recovered/Resolved]
  - Alanine aminotransferase increased [Recovered/Resolved with Sequelae]
  - Blood bilirubin increased [Recovered/Resolved with Sequelae]
